FAERS Safety Report 5148191-1 (Version None)
Quarter: 2006Q4

REPORT INFORMATION
  Report Type: 
  Country: None (occurrence: None)
  Receive Date: 20061110
  Receipt Date: 20060306
  Transmission Date: 20070319
  Serious: Yes (Other)
  Sender: FDA-Public Use
  Company Number: US-ELI_LILLY_AND_COMPANY-US200605005821

PATIENT
  Age: 36 Year
  Sex: Male
  Weight: 102.49 kg

DRUGS (6)
  1. ZYPREXA [Suspect]
     Indication: DEPRESSION
     Dosage: 20 MG, UNK
     Dates: start: 20000101, end: 20051001
  2. QUETIAPINE [Concomitant]
     Dates: start: 20030201
  3. LITHIUM CARBONATE [Concomitant]
     Dates: start: 19980101
  4. VALPROATE BISMUTH [Concomitant]
     Dates: start: 19980101
  5. ZOLOFT [Concomitant]
     Dates: start: 19980601
  6. REMERON [Concomitant]
     Dates: start: 20030401, end: 20051001

REACTIONS (6)
  - BLOOD CHOLESTEROL ABNORMAL [None]
  - DIABETES MELLITUS [None]
  - HEPATITIS VIRAL [None]
  - HYPERGLYCAEMIC HYPEROSMOLAR NONKETOTIC SYNDROME [None]
  - HYPERTENSION [None]
  - METABOLIC DISORDER [None]
